FAERS Safety Report 8341555-4 (Version None)
Quarter: 2012Q2

REPORT INFORMATION
  Report Type: 
  Country: None (occurrence: None)
  Receive Date: 20120507
  Receipt Date: 20100331
  Transmission Date: 20120825
  Serious: No
  Sender: FDA-Public Use
  Company Number: US-TEVA-2010001876

PATIENT
  Sex: Male
  Weight: 85.806 kg

DRUGS (2)
  1. TREANDA [Suspect]
     Indication: LYMPHOMA
     Route: 042
     Dates: start: 20100331
  2. RITUXAN [Concomitant]
     Indication: LYMPHOMA
     Route: 042
     Dates: start: 20100330

REACTIONS (2)
  - INJECTION SITE EXTRAVASATION [None]
  - INFUSION SITE SWELLING [None]
